FAERS Safety Report 7915136-8 (Version None)
Quarter: 2011Q4

REPORT INFORMATION
  Report Type: 
  Country: None (occurrence: None)
  Receive Date: 20111115
  Receipt Date: 20111104
  Transmission Date: 20120403
  Serious: Yes (Death)
  Sender: FDA-Public Use
  Company Number: JP-ACTELION-A-CH2011-56524

PATIENT
  Age: 19 Year
  Sex: Male

DRUGS (3)
  1. TRACLEER [Suspect]
     Indication: PULMONARY ARTERIAL HYPERTENSION
     Route: 048
  2. BERAPROST [Concomitant]
  3. SILDENAFIL [Concomitant]

REACTIONS (4)
  - PULMONARY ARTERIAL HYPERTENSION [None]
  - SUDDEN DEATH [None]
  - SYNCOPE [None]
  - RIGHT VENTRICULAR HYPERTROPHY [None]
